FAERS Safety Report 5429273-3 (Version None)
Quarter: 2007Q3

REPORT INFORMATION
  Report Type: 
  Country: None (occurrence: None)
  Receive Date: 20070827
  Receipt Date: 20070827
  Transmission Date: 20080115
  Serious: Yes (Other)
  Sender: FDA-Public Use
  Company Number: None

PATIENT
  Age: 52 Year
  Sex: Female

DRUGS (2)
  1. AFRIN [Suspect]
     Dosage: NAS;QD;NAS
     Route: 045
     Dates: start: 20070601, end: 20070813
  2. AFRIN [Suspect]
     Dosage: NAS;QD;NAS
     Route: 045

REACTIONS (2)
  - DRUG DEPENDENCE [None]
  - MEDICATION ERROR [None]
